FAERS Safety Report 12798576 (Version 2)
Quarter: 2017Q1

REPORT INFORMATION
  Report Type: Report from Study
  Country: US (occurrence: US)
  Receive Date: 20160930
  Receipt Date: 20170208
  Transmission Date: 20170428
  Serious: Yes (Death, Other)
  Sender: FDA-Public Use
  Company Number: US-GILEAD-2016-0235930

PATIENT
  Age: 55 Year
  Sex: Female
  Weight: 65.76 kg

DRUGS (8)
  1. AMBRISENTAN [Suspect]
     Active Substance: AMBRISENTAN
     Indication: PULMONARY HYPERTENSION
     Dosage: 10 MG, QD
     Route: 065
     Dates: start: 20110817
  2. ALBUTEROL                          /00139501/ [Concomitant]
     Active Substance: ALBUTEROL
  3. LASIX [Concomitant]
     Active Substance: FUROSEMIDE
  4. PROVENTIL [Concomitant]
     Active Substance: ALBUTEROL
  5. COREG [Concomitant]
     Active Substance: CARVEDILOL
  6. ATENOLOL. [Concomitant]
     Active Substance: ATENOLOL
  7. ALLOPURINOL. [Concomitant]
     Active Substance: ALLOPURINOL
  8. O2                                 /00150301/ [Concomitant]
     Active Substance: OXYGEN

REACTIONS (1)
  - Death [Fatal]

NARRATIVE: CASE EVENT DATE: 201609
